FAERS Safety Report 10056656 (Version 2)
Quarter: 2014Q2

REPORT INFORMATION
  Report Type: Report from Study
  Country: US (occurrence: US)
  Receive Date: 20140403
  Receipt Date: 20140521
  Transmission Date: 20141212
  Serious: Yes (Other)
  Sender: FDA-Public Use
  Company Number: US-BRISTOL-MYERS SQUIBB COMPANY-20593638

PATIENT
  Age: 24 Year
  Sex: Male

DRUGS (3)
  1. ARIPIPRAZOLE [Suspect]
     Indication: BIPOLAR I DISORDER
     Dosage: 20MG(06NOV2013-6NOV-2013)
     Route: 048
     Dates: start: 20131016, end: 20131105
  2. ATIVAN [Concomitant]
     Indication: AGITATION
     Route: 048
     Dates: start: 20131022
  3. ATIVAN [Concomitant]
     Indication: ANXIETY
     Route: 048
     Dates: start: 20131022

REACTIONS (1)
  - Bipolar disorder [Recovered/Resolved]
